FAERS Safety Report 6547330-5 (Version None)
Quarter: 2010Q1

REPORT INFORMATION
  Report Type: 
  Country: None (occurrence: None)
  Receive Date: 20100122
  Receipt Date: 20100114
  Transmission Date: 20100710
  Serious: Yes (Hospitalization)
  Sender: FDA-Public Use
  Company Number: FR-ELI_LILLY_AND_COMPANY-FR200910001776

PATIENT
  Sex: Female
  Weight: 71 kg

DRUGS (1)
  1. SOMATROPIN [Suspect]
     Dosage: 2 MG, UNKNOWN
     Route: 065
     Dates: start: 20071116, end: 20090326

REACTIONS (2)
  - CARPUS CURVUS [None]
  - CONDITION AGGRAVATED [None]
